FAERS Safety Report 7852556-4 (Version None)
Quarter: 2011Q4

REPORT INFORMATION
  Report Type: 
  Country: None (occurrence: None)
  Receive Date: 20111026
  Receipt Date: 20111017
  Transmission Date: 20120403
  Serious: Yes (Other)
  Sender: FDA-Public Use
  Company Number: US-ASTRAZENECA-2011SE62660

PATIENT
  Sex: Male

DRUGS (2)
  1. RHINOCORT [Suspect]
     Route: 045
  2. CRESTOR [Suspect]
     Route: 048

REACTIONS (2)
  - ROAD TRAFFIC ACCIDENT [None]
  - SURGERY [None]
